FAERS Safety Report 5386075-4 (Version None)
Quarter: 2007Q3

REPORT INFORMATION
  Report Type: 
  Country: None (occurrence: None)
  Receive Date: 20070710
  Receipt Date: 20070627
  Transmission Date: 20080115
  Serious: Yes (Other)
  Sender: FDA-Public Use
  Company Number: 2007-160571-NL

PATIENT
  Age: 94 Year
  Sex: Female
  Weight: 41 kg

DRUGS (7)
  1. REMERON [Suspect]
     Indication: SLEEP DISORDER
     Dosage: 15 MG DAILY
     Dates: start: 20070601
  2. KLONOPIN [Suspect]
     Dates: start: 20070601
  3. TOPROL-XL [Concomitant]
  4. LASIX [Concomitant]
  5. CARDIZEM [Concomitant]
  6. ASPIRIN [Concomitant]
  7. DIGOXIN [Concomitant]

REACTIONS (1)
  - RESPIRATORY RATE DECREASED [None]
